FAERS Safety Report 14945862 (Version 1)
Quarter: 2018Q2

REPORT INFORMATION
  Report Type: Spontaneous
  Country: US (occurrence: US)
  Receive Date: 20180508
  Receipt Date: 20180508
  Transmission Date: 20180711
  Serious: No
  Sender: FDA-Public Use
  Company Number: None

PATIENT
  Age: 62 Year
  Sex: Female

DRUGS (5)
  1. ROSUVASTATIN 5MG [Concomitant]
     Active Substance: ROSUVASTATIN
     Dates: start: 20180430
  2. VALSARTAN 40MG [Concomitant]
     Active Substance: VALSARTAN
     Dates: start: 20160218
  3. EZETIMIBE. [Suspect]
     Active Substance: EZETIMIBE
     Route: 048
     Dates: start: 20160630, end: 20180508
  4. LEVOTHYROXINE 88MCG [Concomitant]
     Dates: start: 20161003
  5. NOVOLOG [Concomitant]
     Active Substance: INSULIN ASPART
     Dates: start: 20160915

REACTIONS (1)
  - Vision blurred [None]

NARRATIVE: CASE EVENT DATE: 20180508
